FAERS Safety Report 21508088 (Version 1)
Quarter: 2022Q4

REPORT INFORMATION
  Report Type: Spontaneous
  Country: US (occurrence: US)
  Receive Date: 20221026
  Receipt Date: 20221026
  Transmission Date: 20230113
  Serious: Yes (Other)
  Sender: FDA-Public Use
  Company Number: US-BAYER-2022A143823

PATIENT
  Age: 81 Year

DRUGS (1)
  1. AFRIN ORIGINAL NASAL [Suspect]
     Active Substance: OXYMETAZOLINE HYDROCHLORIDE
     Indication: Product used for unknown indication
     Dosage: 11 SPRAYS EACH NOSTRILS
     Route: 065

REACTIONS (2)
  - Drug dependence [Unknown]
  - Night sweats [Unknown]
